FAERS Safety Report 17097530 (Version 13)
Quarter: 2020Q2

REPORT INFORMATION
  Report Type: Report from Study
  Country: PL (occurrence: PL)
  Receive Date: 20191202
  Receipt Date: 20200626
  Transmission Date: 20200713
  Serious: Yes (Death, Hospitalization)
  Sender: FDA-Public Use
  Company Number: PL-EISAI MEDICAL RESEARCH-EC-2019-066170

PATIENT
  Age: 62 Year
  Sex: Male
  Weight: 60 kg

DRUGS (17)
  1. ENOXAPARIN SODIUM. [Concomitant]
     Active Substance: ENOXAPARIN SODIUM
     Dates: start: 20170703
  2. SPIRIVA [Concomitant]
     Active Substance: TIOTROPIUM BROMIDE MONOHYDRATE
     Dates: start: 201801, end: 20191117
  3. BISOCARD [Concomitant]
     Active Substance: BISOPROLOL
     Dates: start: 201701, end: 20191117
  4. DEXAMETHASONE. [Concomitant]
     Active Substance: DEXAMETHASONE
     Dates: start: 20191106, end: 20191108
  5. LENVATINIB [Suspect]
     Active Substance: LENVATINIB
     Indication: NON-SMALL CELL LUNG CANCER METASTATIC
     Route: 048
     Dates: start: 20190717, end: 20191117
  6. THEOSPIREX [Concomitant]
     Active Substance: THEOPHYLLINE ANHYDROUS
     Dates: start: 201701, end: 20191117
  7. ENAP-H [Concomitant]
     Dates: start: 201701, end: 20191117
  8. DEXAMETHASONE. [Concomitant]
     Active Substance: DEXAMETHASONE
     Dates: start: 20191103, end: 20191105
  9. CUTIVATE [Concomitant]
     Active Substance: FLUTICASONE PROPIONATE
     Dates: start: 20191021
  10. ASPULMO [Concomitant]
     Dates: start: 201801, end: 20191117
  11. OLFEN UNO [Concomitant]
     Active Substance: DICLOFENAC SODIUM
     Dates: start: 201801
  12. PEMBROLIZUMAB. [Suspect]
     Active Substance: PEMBROLIZUMAB
     Route: 041
     Dates: start: 20191010, end: 20191010
  13. PULMOTEROL [Concomitant]
     Dates: start: 201701, end: 20191117
  14. KETONAL [Concomitant]
     Dates: start: 20190719
  15. PEMBROLIZUMAB. [Suspect]
     Active Substance: PEMBROLIZUMAB
     Indication: NON-SMALL CELL LUNG CANCER METASTATIC
     Route: 041
     Dates: start: 20190717, end: 20190919
  16. LOPERAMID [Concomitant]
     Active Substance: LOPERAMIDE
     Dates: start: 20190919
  17. PRENOME [Concomitant]
     Active Substance: OMEPRAZOLE
     Dates: start: 20190719

REACTIONS (1)
  - Pneumonia [Recovered/Resolved]

NARRATIVE: CASE EVENT DATE: 20191117
